FAERS Safety Report 6477581-X (Version None)
Quarter: 2009Q4

REPORT INFORMATION
  Report Type: 
  Country: None (occurrence: None)
  Receive Date: 20091207
  Receipt Date: 20091126
  Transmission Date: 20100525
  Serious: Yes (Other)
  Sender: FDA-Public Use
  Company Number: US-BAYER-200941078GPV

PATIENT
  Age: 59 Year
  Sex: Female
  Weight: 71 kg

DRUGS (20)
  1. ASPIRIN [Suspect]
     Indication: CARDIOVASCULAR EVENT PROPHYLAXIS
  2. SIMVASTATIN [Interacting]
     Indication: HYPERLIPIDAEMIA
  3. GLIPIZIDE [Interacting]
     Indication: TYPE 2 DIABETES MELLITUS
  4. RISPERIDONE [Interacting]
     Indication: PSYCHOTIC DISORDER
  5. BROMOCRIPTINE [Interacting]
     Indication: ADVERSE DRUG REACTION
  6. HYDROCHLOROTHIAZIDE [Interacting]
     Indication: HYPERTENSION
  7. DIVALPROEX SODIUM [Interacting]
     Indication: CONVULSION
  8. DIVALPROEX SODIUM [Interacting]
     Dosage: TOTAL DAILY DOSE: 500 MG
  9. DIVALPROEX SODIUM [Interacting]
     Dosage: TOTAL DAILY DOSE: 1000 MG
  10. ATENOLOL [Concomitant]
     Indication: HYPERTENSION
  11. BENAZEPRIL HYDROCHLORIDE [Concomitant]
     Indication: HYPERTENSION
  12. NIACIN [Concomitant]
     Indication: HYPERLIPIDAEMIA
  13. LEVOTHYROXINE SODIUM [Concomitant]
     Indication: HYPOTHYROIDISM
  14. RANITIDINE [Concomitant]
     Indication: GASTROOESOPHAGEAL REFLUX DISEASE
  15. LACTULOSE [Concomitant]
     Indication: CONSTIPATION
  16. CALCIUM [Concomitant]
     Indication: CALCIUM DEFICIENCY
  17. VITAMIN D [Concomitant]
     Indication: HYPOVITAMINOSIS
  18. VITAMIN E [Concomitant]
     Indication: VITAMIN E DEFICIENCY
  19. LORAZEPAM [Concomitant]
     Indication: GRAND MAL CONVULSION
  20. METFORMIN HCL [Concomitant]
     Indication: HYPERGLYCAEMIA

REACTIONS (6)
  - CONFUSIONAL STATE [None]
  - DIZZINESS [None]
  - DRUG TOXICITY [None]
  - INCOHERENT [None]
  - LETHARGY [None]
  - TREMOR [None]
